FAERS Safety Report 8618872-3 (Version None)
Quarter: 2012Q3

REPORT INFORMATION
  Report Type: 
  Country: None (occurrence: None)
  Receive Date: 20120824
  Receipt Date: 20120820
  Transmission Date: 20120928
  Serious: Yes (Other)
  Sender: FDA-Public Use
  Company Number: IT-PFIZER INC-2012204441

PATIENT
  Age: 17 Year
  Sex: Male
  Weight: 55 kg

DRUGS (2)
  1. ESCITALOPRAM [Suspect]
     Indication: PANIC DISORDER WITH AGORAPHOBIA
     Dosage: 10 MG DAILY
     Route: 048
     Dates: start: 20120309, end: 20120627
  2. XANAX [Suspect]
     Indication: ANXIETY
     Dosage: 0.5 MG DAILY
     Route: 048
     Dates: start: 20120228, end: 20120813

REACTIONS (1)
  - SUICIDAL IDEATION [None]
